FAERS Safety Report 8059641-5 (Version None)
Quarter: 2012Q1

REPORT INFORMATION
  Report Type: 
  Country: None (occurrence: None)
  Receive Date: 20120120
  Receipt Date: 20120112
  Transmission Date: 20120608
  Serious: Yes (Hospitalization)
  Sender: FDA-Public Use
  Company Number: PHHY2012NO003108

PATIENT
  Sex: Female

DRUGS (1)
  1. GILENYA [Suspect]
     Route: 048

REACTIONS (5)
  - ATRIOVENTRICULAR BLOCK FIRST DEGREE [None]
  - HEART RATE IRREGULAR [None]
  - HEART RATE DECREASED [None]
  - ATRIOVENTRICULAR BLOCK SECOND DEGREE [None]
  - BLOOD PRESSURE DECREASED [None]
